APPROVED DRUG PRODUCT: MICRO-K
Active Ingredient: POTASSIUM CHLORIDE
Strength: 8MEQ **Federal Register determination that product was not discontinued or withdrawn for safety or effectiveness reasons**
Dosage Form/Route: CAPSULE, EXTENDED RELEASE;ORAL
Application: N018238 | Product #001
Applicant: NESHER PHARMACEUTICALS USA LLC
Approved: Approved Prior to Jan 1, 1982 | RLD: Yes | RS: No | Type: DISCN